FAERS Safety Report 9590564 (Version 1)
Quarter: 2013Q4

REPORT INFORMATION
  Report Type: Spontaneous
  Country: US (occurrence: US)
  Receive Date: 20131003
  Receipt Date: 20131003
  Transmission Date: 20140711
  Serious: No
  Sender: FDA-Public Use
  Company Number: US-AMGEN-USASP2012077688

PATIENT
  Sex: Female

DRUGS (9)
  1. ENBREL [Suspect]
     Indication: RHEUMATOID ARTHRITIS
     Dosage: 25 MG, QWK
  2. HUMIRA [Concomitant]
     Indication: RHEUMATOID ARTHRITIS
     Dosage: 40 MG/0.8
     Route: 058
  3. SINGULAR [Concomitant]
     Dosage: 10 MG, UNK
  4. LASIX                              /00032601/ [Concomitant]
     Dosage: 40 MG, UNK
  5. CARDIZEM CD [Concomitant]
     Dosage: 240 MG/24
  6. OMEPRAZOLE [Concomitant]
     Dosage: 20 MG, UNK
  7. ADVAIR [Concomitant]
     Dosage: 250/50
  8. ALTACE [Concomitant]
     Dosage: 5 MG, UNK
  9. ALOPURINOL [Concomitant]
     Dosage: 300 MG, UNK

REACTIONS (1)
  - Therapeutic response decreased [Unknown]
